FAERS Safety Report 11405634 (Version 1)
Quarter: 2015Q3

REPORT INFORMATION
  Report Type: Spontaneous
  Country: US (occurrence: US)
  Receive Date: 20150821
  Receipt Date: 20150821
  Transmission Date: 20151125
  Serious: No
  Sender: FDA-Public Use
  Company Number: US-PFIZER INC-2015276012

PATIENT
  Age: 38 Year
  Sex: Male
  Weight: 86 kg

DRUGS (2)
  1. CHANTIX [Suspect]
     Active Substance: VARENICLINE TARTRATE
     Indication: SMOKING CESSATION THERAPY
     Dosage: 0.5 MG, UNK
     Route: 048
     Dates: start: 201507, end: 2015
  2. CHANTIX [Suspect]
     Active Substance: VARENICLINE TARTRATE
     Dosage: 1 MG, 2X/DAY, ONE IN THE MORNING AND ONE IN THE EVENING
     Route: 048
     Dates: start: 2015

REACTIONS (4)
  - Drug ineffective [Not Recovered/Not Resolved]
  - Depression [Not Recovered/Not Resolved]
  - Mood altered [Not Recovered/Not Resolved]
  - Feeling of despair [Unknown]

NARRATIVE: CASE EVENT DATE: 2015
